FAERS Safety Report 15935890 (Version 1)
Quarter: 2019Q1

REPORT INFORMATION
  Report Type: Spontaneous
  Country: ES (occurrence: ES)
  Receive Date: 20190208
  Receipt Date: 20190208
  Transmission Date: 20190417
  Serious: Yes (Other)
  Sender: FDA-Public Use
  Company Number: ES-ACCORD-106205

PATIENT
  Age: 67 Year
  Sex: Female
  Weight: 90 kg

DRUGS (1)
  1. OXALIPLATIN. [Suspect]
     Active Substance: OXALIPLATIN
     Indication: METASTASIS
     Dosage: 5 MG / ML CONCENTRATE FOR SOLUTION FOR PERFUSION, 1 VIAL OF 40 ML,137ML / H FOR 2H
     Route: 042
     Dates: start: 20180423, end: 20180509

REACTIONS (6)
  - Hyperhidrosis [Recovered/Resolved]
  - Dizziness [Recovered/Resolved]
  - Abdominal pain [Recovered/Resolved]
  - Nausea [Recovered/Resolved]
  - Hypotension [Recovered/Resolved]
  - Respiratory failure [Recovered/Resolved]

NARRATIVE: CASE EVENT DATE: 20180423
